FAERS Safety Report 4555756-4 (Version None)
Quarter: 2005Q1

REPORT INFORMATION
  Report Type: 
  Country: None (occurrence: None)
  Receive Date: 20050119
  Receipt Date: 20050112
  Transmission Date: 20050727
  Serious: Yes (Hospitalization)
  Sender: FDA-Public Use
  Company Number: 200510414GDDC

PATIENT
  Sex: Female

DRUGS (2)
  1. LANTUS [Suspect]
     Indication: DIABETES MELLITUS
     Dosage: DOSE: UNK
     Route: 058
  2. ACTRAPID [Concomitant]
     Indication: DIABETES MELLITUS

REACTIONS (1)
  - ARTERIAL OCCLUSIVE DISEASE [None]
